FAERS Safety Report 23565355 (Version 1)
Quarter: 2024Q1

REPORT INFORMATION
  Report Type: Spontaneous
  Country: US (occurrence: None)
  Receive Date: 20240224
  Receipt Date: 20240224
  Transmission Date: 20240410
  Serious: No
  Sender: FDA-Public Use
  Company Number: None

PATIENT
  Sex: Male
  Weight: 72.9 kg

DRUGS (3)
  1. ARIPIPRAZOLE [Suspect]
     Active Substance: ARIPIPRAZOLE
     Indication: Bipolar disorder
     Dosage: OTHER QUANTITY : 30 TABLET(S);?
     Route: 048
  2. DEPAKOTE [Concomitant]
  3. ABILIFY [Concomitant]

REACTIONS (6)
  - Restlessness [None]
  - Weight increased [None]
  - Impulsive behaviour [None]
  - Libido increased [None]
  - Disturbance in attention [None]
  - Personality disorder [None]
